FAERS Safety Report 23377880 (Version 1)
Quarter: 2024Q1

REPORT INFORMATION
  Report Type: Spontaneous
  Country: CN (occurrence: CN)
  Receive Date: 20240108
  Receipt Date: 20240108
  Transmission Date: 20240410
  Serious: Yes (Life-Threatening)
  Sender: FDA-Public Use
  Company Number: CN-BAYER-2024A002837

PATIENT
  Age: 71 Year
  Sex: Female

DRUGS (1)
  1. AVELOX [Suspect]
     Active Substance: MOXIFLOXACIN HYDROCHLORIDE
     Indication: Pneumonia
     Dosage: 0.4 G, QD
     Route: 048
     Dates: start: 20231205, end: 20231205

REACTIONS (6)
  - Supraventricular tachycardia [Recovering/Resolving]
  - Ventricular fibrillation [Recovering/Resolving]
  - Altered state of consciousness [Recovered/Resolved]
  - Unresponsive to stimuli [None]
  - Contraindicated product prescribed [None]
  - Contraindicated product administered [None]

NARRATIVE: CASE EVENT DATE: 20231205
